FAERS Safety Report 18693641 (Version 2)
Quarter: 2021Q1

REPORT INFORMATION
  Report Type: Spontaneous
  Country: US (occurrence: US)
  Receive Date: 20210104
  Receipt Date: 20210217
  Transmission Date: 20210419
  Serious: No
  Sender: FDA-Public Use
  Company Number: US-BIOVITRUM-2020US8104

PATIENT
  Sex: Female
  Weight: 6.75 kg

DRUGS (1)
  1. SYNAGIS [Suspect]
     Active Substance: PALIVIZUMAB
     Indication: PRODUCT USED FOR UNKNOWN INDICATION
     Route: 030
     Dates: start: 202011

REACTIONS (3)
  - Weight decreased [Unknown]
  - Feeling abnormal [Unknown]
  - Injection site irritation [Recovered/Resolved]
